FAERS Safety Report 7175581-8 (Version None)
Quarter: 2010Q4

REPORT INFORMATION
  Report Type: 
  Country: None (occurrence: None)
  Receive Date: 20101220
  Receipt Date: 20100322
  Transmission Date: 20110411
  Serious: No
  Sender: FDA-Public Use
  Company Number: US-AMGEN-TCS401337

PATIENT

DRUGS (3)
  1. ENBREL [Suspect]
     Indication: RHEUMATOID ARTHRITIS
     Dosage: 50 MG, QWK
     Route: 058
     Dates: start: 20100201
  2. HYDROXYCHLOROQUINE [Concomitant]
     Dosage: 400 MG, QD
     Route: 048
     Dates: start: 20100130
  3. METHOTREXATE [Concomitant]
     Dosage: 2.5 MG, 3 TIMES/WK
     Route: 048

REACTIONS (4)
  - INJECTION SITE HAEMATOMA [None]
  - RASH ERYTHEMATOUS [None]
  - RASH PRURITIC [None]
  - SKIN SWELLING [None]
